FAERS Safety Report 9493538 (Version 2)
Quarter: 2013Q4

REPORT INFORMATION
  Report Type: Spontaneous
  Country: US (occurrence: US)
  Receive Date: 20130902
  Receipt Date: 20131017
  Transmission Date: 20140711
  Serious: No
  Sender: FDA-Public Use
  Company Number: US-PFIZER INC-2013251346

PATIENT
  Sex: Female

DRUGS (3)
  1. LYRICA [Suspect]
     Indication: MUSCLE SPASMS
     Dosage: 50 MG, 3X/DAY
  2. LYRICA [Suspect]
     Indication: NERVE INJURY
  3. LYRICA [Suspect]
     Indication: PELVIC PAIN

REACTIONS (3)
  - Off label use [Unknown]
  - Drug effect incomplete [Unknown]
  - Vulvovaginal pain [Unknown]
